FAERS Safety Report 23892245 (Version 1)
Quarter: 2024Q2

REPORT INFORMATION
  Report Type: Other
  Country: US (occurrence: None)
  Receive Date: 20240524
  Receipt Date: 20240524
  Transmission Date: 20240715
  Serious: No
  Sender: FDA-Public Use
  Company Number: US-ROCHE-3350019

PATIENT
  Age: 16 Year
  Sex: Female

DRUGS (4)
  1. TOCILIZUMAB [Suspect]
     Active Substance: TOCILIZUMAB
     Indication: COVID-19 pneumonia
     Dosage: TWO DOSES
     Route: 065
  2. REMDESIVIR [Concomitant]
     Active Substance: REMDESIVIR
     Dosage: 5 DAYS
  3. PREDNISONE [Concomitant]
     Active Substance: PREDNISONE
     Dosage: 9 DAYS
  4. SILTUXIMAB [Concomitant]
     Active Substance: SILTUXIMAB
     Dosage: 21 DAYS

REACTIONS (2)
  - Off label use [Unknown]
  - No adverse event [Unknown]
